FAERS Safety Report 24083410 (Version 2)
Quarter: 2024Q3

REPORT INFORMATION
  Report Type: Spontaneous
  Country: US (occurrence: US)
  Receive Date: 20240712
  Receipt Date: 20240801
  Transmission Date: 20241016
  Serious: Yes (Other)
  Sender: ORGANON
  Company Number: US-ORGANON-O2407USA001058

PATIENT
  Age: 22 Year
  Sex: Female
  Weight: 60.771 kg

DRUGS (3)
  1. NEXPLANON [Suspect]
     Active Substance: ETONOGESTREL
     Indication: Contraception
     Dosage: 1 IMPLANT OF 68MG (RIGHT UPPER ARM)
     Route: 059
     Dates: start: 20230405, end: 20240710
  2. NEXPLANON [Suspect]
     Active Substance: ETONOGESTREL
     Dosage: 1 IMPLANT
     Route: 059
     Dates: start: 20200108, end: 20230405
  3. VALTREX [Concomitant]
     Active Substance: VALACYCLOVIR HYDROCHLORIDE

REACTIONS (6)
  - Device dislocation [Recovered/Resolved]
  - Discomfort [Unknown]
  - Implant site pain [Unknown]
  - Device placement issue [Recovered/Resolved]
  - Incorrect product administration duration [Unknown]
  - Device placement issue [Recovered/Resolved]

NARRATIVE: CASE EVENT DATE: 20200108
